FAERS Safety Report 9304356 (Version 1)
Quarter: 2013Q2

REPORT INFORMATION
  Report Type: Spontaneous
  Country: GB (occurrence: GB)
  Receive Date: 20130522
  Receipt Date: 20130522
  Transmission Date: 20140414
  Serious: Yes (Disabling)
  Sender: FDA-Public Use
  Company Number: PHHY2013GB049447

PATIENT
  Age: 54 Year
  Sex: Male
  Weight: 119 kg

DRUGS (1)
  1. PIOGLITAZONE [Suspect]
     Dates: start: 201205, end: 20130310

REACTIONS (3)
  - Blister [Recovered/Resolved]
  - Pain in extremity [Recovered/Resolved]
  - Local swelling [Recovered/Resolved]
